FAERS Safety Report 13370416 (Version 1)
Quarter: 2017Q1

REPORT INFORMATION
  Report Type: Spontaneous
  Country: US (occurrence: US)
  Receive Date: 20170324
  Receipt Date: 20170324
  Transmission Date: 20170429
  Serious: No
  Sender: FDA-Public Use
  Company Number: US-ROCHE-1269608

PATIENT
  Sex: Female

DRUGS (1)
  1. XOLAIR [Suspect]
     Active Substance: OMALIZUMAB
     Indication: ASTHMA
     Dosage: START A YEAR AGO, LAST LOT NUMBER SHIPPED
     Route: 056
     Dates: start: 2012

REACTIONS (1)
  - Weight increased [Not Recovered/Not Resolved]
